FAERS Safety Report 22952738 (Version 3)
Quarter: 2023Q4

REPORT INFORMATION
  Report Type: Report from Study
  Country: US (occurrence: US)
  Receive Date: 20230918
  Receipt Date: 20231120
  Transmission Date: 20240110
  Serious: Yes (Death, Other)
  Sender: FDA-Public Use
  Company Number: US-ABBVIE-5409131

PATIENT
  Sex: Male
  Weight: 73 kg

DRUGS (6)
  1. CREON [Suspect]
     Active Substance: PANCRELIPASE AMYLASE\PANCRELIPASE LIPASE\PANCRELIPASE PROTEASE
     Indication: Dyspepsia
     Dosage: FORM STRENGTH: 36000 UNITS?FREQUENCY TEXT: 1 CAPSULE PER MEAL
     Route: 048
     Dates: start: 2022, end: 20230310
  2. CREON [Suspect]
     Active Substance: PANCRELIPASE AMYLASE\PANCRELIPASE LIPASE\PANCRELIPASE PROTEASE
     Indication: Dyspepsia
     Dosage: START DATE : 2023,  STRENGTH: 36000 UNIT
     Route: 048
     Dates: start: 2023
  3. VITAMIN B12 [Concomitant]
     Active Substance: CYANOCOBALAMIN
     Indication: Vitamin supplementation
     Route: 065
  4. VITAMIN D [Concomitant]
     Active Substance: VITAMIN D NOS
     Indication: Vitamin supplementation
     Route: 065
  5. ALLOPURINOL [Concomitant]
     Active Substance: ALLOPURINOL
     Indication: Gout
     Route: 065
  6. OXYGENE GAZEUX MESSER [Concomitant]
     Indication: Pulmonary fibrosis
     Route: 065

REACTIONS (7)
  - Cardiac failure acute [Fatal]
  - Fall [Unknown]
  - Urinary tract infection [Fatal]
  - Septic shock [Fatal]
  - Asthenia [Not Recovered/Not Resolved]
  - Acute myocardial infarction [Fatal]
  - Unevaluable event [Not Recovered/Not Resolved]

NARRATIVE: CASE EVENT DATE: 20230101
